FAERS Safety Report 5051986-6 (Version None)
Quarter: 2006Q3

REPORT INFORMATION
  Report Type: 
  Country: None (occurrence: None)
  Receive Date: 20060711
  Receipt Date: 20060620
  Transmission Date: 20061208
  Serious: Yes (Hospitalization, Other)
  Sender: FDA-Public Use
  Company Number: USA021022980

PATIENT
  Age: 89 Year
  Sex: Female
  Weight: 45.5 kg

DRUGS (20)
  1. INSULIN(INSULIN, ANIMAL) VIAL [Suspect]
     Indication: DIABETES MELLITUS
     Dosage: SUBCUTANEOUS
     Route: 058
  2. HUMULIN N [Suspect]
     Indication: DIABETES MELLITUS
     Dosage: SEE IMAGE
     Route: 058
     Dates: start: 19990101
  3. HUMALOG [Suspect]
     Indication: DIABETES MELLITUS
     Dosage: SEE IMAGE
     Route: 058
     Dates: start: 19960101
  4. HUMALOG [Suspect]
  5. HUMALOG [Suspect]
  6. HUMULIN R [Suspect]
     Indication: DIABETES MELLITUS
     Dosage: SUBCUTANEOUS
     Route: 058
     Dates: start: 19990101
  7. LACTULOSE [Concomitant]
  8. SYNTHROID [Concomitant]
  9. ESTRADIOL [Concomitant]
  10. VITAMINS NOS [Concomitant]
  11. DIOVAN [Concomitant]
  12. VITAMIN B-12 [Concomitant]
  13. LANTUS [Concomitant]
  14. NOVOLOG [Concomitant]
  15. XANAX [Concomitant]
  16. PRAVACHOL [Concomitant]
  17. LASIX [Concomitant]
  18. PLENDIL [Concomitant]
  19. ATACAND [Concomitant]
  20. HUMULIN [Suspect]
     Dosage: SEE IMAGE
     Route: 058
     Dates: start: 19990101

REACTIONS (42)
  - ABDOMINAL DISTENSION [None]
  - ACOUSTIC NEUROMA [None]
  - ANXIETY [None]
  - AUTONOMIC NEUROPATHY [None]
  - BLEPHARITIS [None]
  - BLINDNESS [None]
  - BLINDNESS UNILATERAL [None]
  - BLOOD CHOLESTEROL INCREASED [None]
  - BLOOD GLUCOSE DECREASED [None]
  - BLOOD GLUCOSE INCREASED [None]
  - CYSTITIS [None]
  - DRUG INEFFECTIVE [None]
  - DRY EYE [None]
  - DYSPEPSIA [None]
  - DYSPHONIA [None]
  - EYE DISORDER [None]
  - EYE IRRITATION [None]
  - FUNGAL INFECTION [None]
  - GLYCOSYLATED HAEMOGLOBIN INCREASED [None]
  - HYPERHIDROSIS [None]
  - HYPERKERATOSIS [None]
  - HYPERSENSITIVITY [None]
  - HYPERTENSION [None]
  - IMPAIRED GASTRIC EMPTYING [None]
  - INCONTINENCE [None]
  - INJECTION SITE CALCIFICATION [None]
  - INSOMNIA [None]
  - MACULAR DEGENERATION [None]
  - MALABSORPTION [None]
  - MALAISE [None]
  - MUSCULOSKELETAL PAIN [None]
  - MYOCARDIAL INFARCTION [None]
  - PALPITATIONS [None]
  - PRURITUS [None]
  - PSEUDOPHAKIA [None]
  - RASH PRURITIC [None]
  - SCOTOMA [None]
  - SEPSIS [None]
  - TREATMENT NONCOMPLIANCE [None]
  - VEIN DISORDER [None]
  - VISUAL ACUITY REDUCED [None]
  - WEIGHT DECREASED [None]
